FAERS Safety Report 18053232 (Version 2)
Quarter: 2020Q3

REPORT INFORMATION
  Report Type: Report from Study
  Country: DE (occurrence: DE)
  Receive Date: 20200722
  Receipt Date: 20200820
  Transmission Date: 20201103
  Serious: Yes (Hospitalization, Other)
  Sender: FDA-Public Use
  Company Number: DE-TEVA-2020-DE-1804667

PATIENT
  Age: 23 Year
  Sex: Female

DRUGS (1)
  1. COPAXONE [Suspect]
     Active Substance: GLATIRAMER ACETATE
     Indication: MULTIPLE SCLEROSIS
     Dates: start: 20190722, end: 201912

REACTIONS (4)
  - Hemianaesthesia [Recovered/Resolved]
  - Dysphagia [Recovered/Resolved]
  - Multiple sclerosis relapse [Recovered/Resolved]
  - Hemiparaesthesia [Recovered/Resolved]

NARRATIVE: CASE EVENT DATE: 20200117
